FAERS Safety Report 5079188-8 (Version None)
Quarter: 2006Q3

REPORT INFORMATION
  Report Type: 
  Country: None (occurrence: None)
  Receive Date: 20060808
  Receipt Date: 20060720
  Transmission Date: 20061208
  Serious: Yes (Other)
  Sender: FDA-Public Use
  Company Number: CC06-035

PATIENT
  Age: 61 Year
  Sex: Female
  Weight: 54.4316 kg

DRUGS (4)
  1. ALBUTEROL INHALATION AEROSOL, 90 MGC/ACTUATION [Suspect]
     Indication: ASTHMA
     Dosage: Q4-6H PRN, ORAL
     Route: 048
  2. ADVAIR DISKUS 100/50 [Concomitant]
  3. PIRIVA [Concomitant]
  4. ENALAPRIL MALEATE [Concomitant]

REACTIONS (2)
  - PHARMACEUTICAL PRODUCT COMPLAINT [None]
  - THERAPY NON-RESPONDER [None]
